FAERS Safety Report 16386627 (Version 2)
Quarter: 2019Q3

REPORT INFORMATION
  Report Type: Spontaneous
  Country: US (occurrence: US)
  Receive Date: 20190604
  Receipt Date: 20190723
  Transmission Date: 20191004
  Serious: No
  Sender: FDA-Public Use
  Company Number: US-TEVA-2019-US-1049791

PATIENT
  Sex: Female

DRUGS (1)
  1. LEUCOVORIN CALCIUM TABLETS, USP [Suspect]
     Active Substance: LEUCOVORIN CALCIUM
     Route: 065

REACTIONS (2)
  - Cow^s milk intolerance [Unknown]
  - Gluten sensitivity [Unknown]
